FAERS Safety Report 21562933 (Version 1)
Quarter: 2022Q4

REPORT INFORMATION
  Report Type: Spontaneous
  Country: US (occurrence: US)
  Receive Date: 20221107
  Receipt Date: 20221107
  Transmission Date: 20230112
  Serious: Yes (Other)
  Sender: FDA-Public Use
  Company Number: US-SUN PHARMACEUTICAL INDUSTRIES LTD-2022R1-361580

PATIENT
  Sex: Male

DRUGS (1)
  1. LEVULAN KERASTICK [Suspect]
     Active Substance: AMINOLEVULINIC ACID HYDROCHLORIDE
     Indication: Exposure to radiation
     Dosage: APPLY 1 STICK TO SCALP 2 HOURS PRIOR TO TREATMENT, REPEAT IN ONE MONTH
     Route: 061

REACTIONS (2)
  - Optic nerve injury [Unknown]
  - Photophobia [Unknown]
